FAERS Safety Report 9518180 (Version 1)
Quarter: 2013Q3

REPORT INFORMATION
  Report Type: Spontaneous
  Country: US (occurrence: None)
  Receive Date: 20130910
  Receipt Date: 20130910
  Transmission Date: 20140515
  Serious: Yes (Life-Threatening, Hospitalization, Disabling)
  Sender: FDA-Public Use
  Company Number: None

PATIENT
  Age: 40 Year
  Sex: Male
  Weight: 106.6 kg

DRUGS (2)
  1. CHLORPROMAZINE [Suspect]
     Indication: PSYCHOTIC DISORDER
     Route: 048
     Dates: start: 20121229, end: 20130331
  2. CHLORPROMAZINE [Suspect]
     Indication: INSOMNIA
     Route: 048
     Dates: start: 20121229, end: 20130331

REACTIONS (2)
  - Depression [None]
  - Suicidal ideation [None]
